FAERS Safety Report 25400981 (Version 3)
Quarter: 2025Q3

REPORT INFORMATION
  Report Type: Spontaneous
  Country: EU (occurrence: EU)
  Receive Date: 20250605
  Receipt Date: 20250910
  Transmission Date: 20251020
  Serious: Yes (Other)
  Sender: ANI
  Company Number: EU-ANIPHARMA-2025-DE-000039

PATIENT
  Age: 77 Year
  Sex: Male
  Weight: 79 kg

DRUGS (2)
  1. CANDESARTAN CILEXETIL [Suspect]
     Active Substance: CANDESARTAN CILEXETIL
     Indication: Hypertension
  2. LERCANIDIPINE HYDROCHLORIDE [Suspect]
     Active Substance: LERCANIDIPINE HYDROCHLORIDE
     Dates: start: 20210518

REACTIONS (6)
  - Prostate cancer [Unknown]
  - Metastases to bone [Unknown]
  - Prostate cancer metastatic [Unknown]
  - Prostatic specific antigen increased [Not Recovered/Not Resolved]
  - Prostate cancer recurrent [Unknown]
  - Drug ineffective [Unknown]

NARRATIVE: CASE EVENT DATE: 20210101
